FAERS Safety Report 8906181 (Version 1)
Quarter: 2012Q4

REPORT INFORMATION
  Report Type: Spontaneous
  Country: US (occurrence: None)
  Receive Date: 20121109
  Receipt Date: 20121109
  Transmission Date: 20130627
  Serious: Yes (Other)
  Sender: FDA-Public Use
  Company Number: None

PATIENT
  Age: 7 Year
  Sex: Male
  Weight: 19.5 kg

DRUGS (8)
  1. MONTELUKAST [Suspect]
     Indication: ASTHMA
     Dosage: 5mg once daily By mouth
     Route: 048
     Dates: start: 201208, end: 201210
  2. MONTELUKAST [Suspect]
     Indication: PNEUMONIA
     Dosage: 5mg once daily By mouth
     Route: 048
     Dates: start: 201208, end: 201210
  3. MONTELUKAST [Suspect]
     Indication: LUNG DISEASE
     Dosage: 5mg once daily By mouth
     Route: 048
     Dates: start: 201208, end: 201210
  4. MONTELUKAST [Suspect]
     Indication: ASTHMA
     Dates: start: 201209
  5. MONTELUKAST [Suspect]
     Indication: PNEUMONIA
     Dates: start: 201209
  6. MONTELUKAST [Suspect]
     Indication: LUNG DISEASE
     Dates: start: 201209
  7. ADVAIR [Concomitant]
  8. XOPENEX [Concomitant]

REACTIONS (2)
  - Aggression [None]
  - Psychomotor hyperactivity [None]
